FAERS Safety Report 5522709-9 (Version None)
Quarter: 2007Q4

REPORT INFORMATION
  Report Type: 
  Country: None (occurrence: None)
  Receive Date: 20071120
  Receipt Date: 20071115
  Transmission Date: 20080405
  Serious: Yes (Other)
  Sender: FDA-Public Use
  Company Number: US-PFIZER INC-2007096234

PATIENT
  Sex: Female
  Weight: 136.1 kg

DRUGS (6)
  1. LIPITOR [Suspect]
     Indication: BLOOD CHOLESTEROL INCREASED
  2. ISONIAZID [Concomitant]
  3. ATENOLOL [Concomitant]
  4. IMDUR [Concomitant]
  5. CODEINE SUL TAB [Concomitant]
  6. ALL OTHER THERAPEUTIC PRODUCTS [Concomitant]

REACTIONS (2)
  - GAIT DISTURBANCE [None]
  - TENDON DISORDER [None]
